FAERS Safety Report 21796695 (Version 1)
Quarter: 2022Q4

REPORT INFORMATION
  Report Type: Spontaneous
  Country: US (occurrence: US)
  Receive Date: 20221229
  Receipt Date: 20221229
  Transmission Date: 20230112
  Serious: No
  Sender: FDA-Public Use
  Company Number: US-AMGEN-USASP2022225177

PATIENT
  Age: 53 Year
  Sex: Female

DRUGS (12)
  1. OTEZLA [Suspect]
     Active Substance: APREMILAST
     Indication: Psoriatic arthropathy
     Dosage: 30 MILLIGRAM, BID
     Route: 048
     Dates: start: 20220826
  2. CELEBREX [Concomitant]
     Active Substance: CELECOXIB
  3. ROBAXIN [Concomitant]
     Active Substance: METHOCARBAMOL
  4. PILOCARPIN [Concomitant]
  5. PREDNISONE [Concomitant]
     Active Substance: PREDNISONE
  6. RITUXAN [Concomitant]
     Active Substance: RITUXIMAB
  7. PEPCID [Concomitant]
     Active Substance: FAMOTIDINE
  8. VITAMIN B12 [Concomitant]
     Active Substance: CYANOCOBALAMIN
  9. VITAMIN B6 [Concomitant]
     Active Substance: PYRIDOXINE HYDROCHLORIDE
  10. IRON [Concomitant]
     Active Substance: IRON
  11. NIACIN [Concomitant]
     Active Substance: NIACIN
  12. PRILOSEC [Concomitant]
     Active Substance: OMEPRAZOLE MAGNESIUM

REACTIONS (3)
  - Insomnia [Not Recovered/Not Resolved]
  - Irritability [Not Recovered/Not Resolved]
  - Gastrooesophageal reflux disease [Not Recovered/Not Resolved]

NARRATIVE: CASE EVENT DATE: 20220101
